FAERS Safety Report 17555294 (Version 1)
Quarter: 2020Q1

REPORT INFORMATION
  Report Type: Spontaneous
  Country: US (occurrence: US)
  Receive Date: 20200318
  Receipt Date: 20200318
  Transmission Date: 20200409
  Serious: No
  Sender: FDA-Public Use
  Company Number: US-MYLANLABS-2020M1025755

PATIENT
  Sex: Male

DRUGS (2)
  1. FENTANYL TRANSDERMAL SYSTEM [Suspect]
     Active Substance: FENTANYL
     Indication: BACK PAIN
     Dosage: EVERY 3 DAYS
     Route: 062
     Dates: start: 20200225
  2. OXYCODONE [Concomitant]
     Active Substance: OXYCODONE
     Indication: PAIN
     Dosage: 20 MILLIGRAM (3X A DAY)

REACTIONS (13)
  - Feeling abnormal [Recovered/Resolved]
  - Yawning [Recovered/Resolved]
  - Somnolence [Recovered/Resolved]
  - Dermatitis contact [Not Recovered/Not Resolved]
  - Product quality issue [Unknown]
  - Sneezing [Recovered/Resolved]
  - Application site erythema [Not Recovered/Not Resolved]
  - Drug ineffective [Recovered/Resolved]
  - Application site pruritus [Not Recovered/Not Resolved]
  - Product adhesion issue [Recovered/Resolved]
  - Withdrawal syndrome [Recovered/Resolved]
  - Application site pain [Not Recovered/Not Resolved]
  - Wrong technique in product usage process [Recovering/Resolving]
